FAERS Safety Report 7011862-6 (Version None)
Quarter: 2010Q3

REPORT INFORMATION
  Report Type: 
  Country: None (occurrence: None)
  Receive Date: 20100924
  Receipt Date: 20100914
  Transmission Date: 20110219
  Serious: Yes (Other)
  Sender: FDA-Public Use
  Company Number: GB-ASTRAZENECA-2010SE43112

PATIENT
  Age: 58 Year
  Sex: Male

DRUGS (3)
  1. GEFITINIB [Suspect]
     Route: 048
     Dates: start: 20100610
  2. ACETAMINOPHEN [Concomitant]
  3. SIMVASTATIN [Concomitant]

REACTIONS (1)
  - HEPATIC FUNCTION ABNORMAL [None]
